FAERS Safety Report 19256603 (Version 2)
Quarter: 2021Q2

REPORT INFORMATION
  Report Type: Spontaneous
  Country: US (occurrence: US)
  Receive Date: 20210513
  Receipt Date: 20210604
  Transmission Date: 20210717
  Serious: Yes (Other)
  Sender: FDA-Public Use
  Company Number: US-DSJP-DSU-2021-114294

PATIENT
  Sex: Female

DRUGS (2)
  1. OLMESARTAN MEDOXOMIL. [Suspect]
     Active Substance: OLMESARTAN MEDOXOMIL
     Indication: PRODUCT USED FOR UNKNOWN INDICATION
     Dosage: UNK
     Route: 065
  2. BENICAR [Suspect]
     Active Substance: OLMESARTAN MEDOXOMIL
     Indication: PRODUCT USED FOR UNKNOWN INDICATION
     Dosage: UNK
     Route: 065
     Dates: start: 2010

REACTIONS (15)
  - Heart rate decreased [Unknown]
  - Atrial fibrillation [Unknown]
  - Arthralgia [Unknown]
  - Cerebrovascular accident [Unknown]
  - Supraventricular tachycardia [Unknown]
  - Dizziness [Unknown]
  - Bladder pain [Unknown]
  - Myelopathy [Unknown]
  - Multiple sclerosis [Unknown]
  - Pericardial effusion [Recovered/Resolved]
  - Micturition urgency [Unknown]
  - Mental impairment [Unknown]
  - Urinary hesitation [Unknown]
  - Back pain [Unknown]
  - Urinary retention [Unknown]

NARRATIVE: CASE EVENT DATE: 2017
